FAERS Safety Report 7180053-0 (Version None)
Quarter: 2010Q4

REPORT INFORMATION
  Report Type: 
  Country: None (occurrence: None)
  Receive Date: 20101221
  Receipt Date: 20101210
  Transmission Date: 20110411
  Serious: Yes (Death, Other)
  Sender: FDA-Public Use
  Company Number: JP-AMGEN-JPNCT2010008248

PATIENT

DRUGS (7)
  1. PANITUMUMAB [Suspect]
     Indication: COLORECTAL CANCER
     Dosage: 6 MG/KG, Q2WK
     Route: 041
     Dates: start: 20101020, end: 20101117
  2. ASPIRIN [Suspect]
     Route: 048
  3. PANALDINE [Suspect]
     Route: 048
  4. NITROL [Suspect]
     Route: 048
  5. TAMSULOSIN HCL [Concomitant]
     Route: 048
  6. LASIX [Concomitant]
     Route: 048
  7. MEXITIL [Concomitant]
     Route: 048

REACTIONS (2)
  - ACUTE MYOCARDIAL INFARCTION [None]
  - INTERSTITIAL LUNG DISEASE [None]
